FAERS Safety Report 5287312-7 (Version None)
Quarter: 2007Q2

REPORT INFORMATION
  Report Type: 
  Country: None (occurrence: None)
  Receive Date: 20070404
  Receipt Date: 20070327
  Transmission Date: 20071010
  Serious: Yes (Other)
  Sender: FDA-Public Use
  Company Number: FR-PFIZER INC-2007024992

PATIENT
  Age: 78 Year
  Sex: Male

DRUGS (2)
  1. AMLOR [Suspect]
     Indication: HYPERTENSION
     Route: 048
  2. EZETIMIBE/SIMVASTATIN [Suspect]

REACTIONS (4)
  - ANOREXIA [None]
  - FORMICATION [None]
  - OEDEMA PERIPHERAL [None]
  - SENSORY LOSS [None]
